FAERS Safety Report 23459673 (Version 1)
Quarter: 2024Q1

REPORT INFORMATION
  Report Type: Spontaneous
  Country: TH (occurrence: TH)
  Receive Date: 20240131
  Receipt Date: 20240131
  Transmission Date: 20240409
  Serious: Yes (Life-Threatening, Hospitalization, Other)
  Sender: FDA-Public Use
  Company Number: TH-EPICPHARMA-TH-2024EPCLIT00216

PATIENT
  Age: 32 Year
  Sex: Male
  Weight: 49 kg

DRUGS (3)
  1. LIDOCAINE HYDROCHLORIDE [Suspect]
     Active Substance: LIDOCAINE HYDROCHLORIDE
     Indication: Local anaesthesia
     Route: 065
  2. LIDOCAINE HYDROCHLORIDE [Suspect]
     Active Substance: LIDOCAINE HYDROCHLORIDE
     Route: 065
  3. EPINEPHRINE [Suspect]
     Active Substance: EPINEPHRINE
     Indication: Local anaesthesia
     Dosage: 0.2MG IN 500ML OF RINGER^S LACTATE SOLUTION
     Route: 058

REACTIONS (6)
  - Local anaesthetic systemic toxicity [Unknown]
  - Generalised tonic-clonic seizure [Recovered/Resolved]
  - Metabolic acidosis [Unknown]
  - Hypoxic-ischaemic encephalopathy [Not Recovered/Not Resolved]
  - Cardiac arrest [Recovered/Resolved]
  - Overdose [Unknown]
